FAERS Safety Report 17089381 (Version 6)
Quarter: 2020Q1

REPORT INFORMATION
  Report Type: Report from Study
  Country: CA (occurrence: CA)
  Receive Date: 20191128
  Receipt Date: 20200207
  Transmission Date: 20200409
  Serious: Yes (Other)
  Sender: FDA-Public Use
  Company Number: CA-GLAXOSMITHKLINE-CA2019AMR211401

PATIENT
  Age: 47 Year
  Sex: Male

DRUGS (1)
  1. MEPOLIZUMAB [Suspect]
     Active Substance: MEPOLIZUMAB
     Indication: ASTHMA
     Dosage: 100 MG, Z(MONTHLY)
     Route: 042
     Dates: start: 20160912

REACTIONS (5)
  - Impaired driving ability [Unknown]
  - Glioblastoma [Unknown]
  - Asthma [Recovered/Resolved]
  - Hypersomnia [Unknown]
  - Nasopharyngitis [Unknown]

NARRATIVE: CASE EVENT DATE: 20191031
